FAERS Safety Report 5266901-X (Version None)
Quarter: 2007Q1

REPORT INFORMATION
  Report Type: 
  Country: None (occurrence: None)
  Receive Date: 20070312
  Receipt Date: 20070305
  Transmission Date: 20070707
  Serious: Yes (Death, Other)
  Sender: FDA-Public Use
  Company Number: 163-21880-07020684

PATIENT
  Age: 81 Year
  Sex: Male

DRUGS (1)
  1. REVLIMID [Suspect]
     Indication: MYELODYSPLASTIC SYNDROME
     Dosage: 10 MG, QD, ORAL
     Route: 048
     Dates: start: 20061208

REACTIONS (10)
  - ASCITES [None]
  - HAEMOCHROMATOSIS [None]
  - HEPATIC CIRRHOSIS [None]
  - MULTI-ORGAN FAILURE [None]
  - PERITONITIS BACTERIAL [None]
  - PORTAL HYPERTENSION [None]
  - RENAL FAILURE [None]
  - RESPIRATORY FAILURE [None]
  - SEPSIS [None]
  - WHITE BLOOD CELL COUNT DECREASED [None]
